FAERS Safety Report 15998937 (Version 1)
Quarter: 2019Q1

REPORT INFORMATION
  Report Type: Spontaneous
  Country: CH (occurrence: CH)
  Receive Date: 20190223
  Receipt Date: 20190223
  Transmission Date: 20190418
  Serious: Yes (Other)
  Sender: FDA-Public Use
  Company Number: CH-SEATTLE GENETICS-2019SGN00395

PATIENT
  Age: 33 Year
  Sex: Female
  Weight: 70 kg

DRUGS (2)
  1. ADCETRIS [Suspect]
     Active Substance: BRENTUXIMAB VEDOTIN
     Dosage: 100 UNK
     Route: 065
     Dates: start: 20180411
  2. ADCETRIS [Suspect]
     Active Substance: BRENTUXIMAB VEDOTIN
     Indication: ANAPLASTIC LARGE CELL LYMPHOMA T- AND NULL-CELL TYPES
     Dosage: 130 MILLIGRAM
     Route: 065
     Dates: start: 20180214, end: 20180509

REACTIONS (4)
  - Neutropenia [Unknown]
  - Agranulocytosis [Unknown]
  - Pancytopenia [Unknown]
  - Off label use [Unknown]
